FAERS Safety Report 8350392-6 (Version None)
Quarter: 2012Q2

REPORT INFORMATION
  Report Type: 
  Country: None (occurrence: None)
  Receive Date: 20120510
  Receipt Date: 20120503
  Transmission Date: 20120825
  Serious: Yes (Hospitalization)
  Sender: FDA-Public Use
  Company Number: US-BAYER-2011-053258

PATIENT
  Age: 46 Year
  Sex: Female
  Weight: 72.562 kg

DRUGS (12)
  1. ACYCLOVIR [Concomitant]
  2. DROSPIRENONE AND ETHINYL ESTRADIOL [Suspect]
  3. YASMIN [Suspect]
     Indication: CONTRACEPTION
     Dosage: UNK
     Route: 048
     Dates: start: 20030101, end: 20040101
  4. YAZ [Suspect]
     Indication: CONTRACEPTION
     Dosage: UNK
     Route: 048
     Dates: start: 20071201, end: 20090101
  5. LEVOXYL [Concomitant]
  6. LEVOTHYROXINE SODIUM [Concomitant]
  7. YASMIN [Suspect]
  8. YAZ [Suspect]
     Indication: PREMENSTRUAL SYNDROME
     Dosage: UNK
     Dates: start: 20081201, end: 20090301
  9. YAZ [Suspect]
  10. DROSPIRENONE AND ETHINYL ESTRADIOL [Suspect]
     Indication: CONTRACEPTION
     Dosage: UNK
     Dates: start: 20090301, end: 20090801
  11. DROSPIRENONE AND ETHINYL ESTRADIOL [Suspect]
     Indication: PREMENSTRUAL SYNDROME
  12. YASMIN [Suspect]
     Indication: PREMENSTRUAL SYNDROME
     Dosage: UNK
     Route: 048
     Dates: start: 20070101, end: 20090701

REACTIONS (7)
  - THROMBOSED VARICOSE VEIN [None]
  - INJURY [None]
  - OEDEMA PERIPHERAL [None]
  - CHEST PAIN [None]
  - PAIN [None]
  - MENTAL DISORDER [None]
  - PAIN IN EXTREMITY [None]
